FAERS Safety Report 19519833 (Version 1)
Quarter: 2021Q3

REPORT INFORMATION
  Report Type: Spontaneous
  Country: US (occurrence: US)
  Receive Date: 20210712
  Receipt Date: 20210712
  Transmission Date: 20211014
  Serious: Yes (Other)
  Sender: FDA-Public Use
  Company Number: US-PFIZER INC-2021800373

PATIENT
  Age: 62 Year
  Sex: Male
  Weight: 95.25 kg

DRUGS (1)
  1. LIDOCAINE HCL [Suspect]
     Active Substance: LIDOCAINE HYDROCHLORIDE
     Dosage: 30 ML
     Dates: start: 20210505

REACTIONS (1)
  - Recalled product administered [Unknown]
